FAERS Safety Report 17613079 (Version 2)
Quarter: 2020Q2

REPORT INFORMATION
  Report Type: Report from Study
  Country: JP (occurrence: JP)
  Receive Date: 20200401
  Receipt Date: 20200520
  Transmission Date: 20200713
  Serious: Yes (Hospitalization, Other)
  Sender: FDA-Public Use
  Company Number: JP-ALXN-A201919903AA

PATIENT

DRUGS (14)
  1. MESTINON [Concomitant]
     Active Substance: PYRIDOSTIGMINE BROMIDE
     Indication: MYASTHENIA GRAVIS
     Dosage: 60 MG, QD
     Route: 048
     Dates: start: 20150929
  2. PROGRAF [Concomitant]
     Active Substance: TACROLIMUS
     Indication: MYASTHENIA GRAVIS
     Dosage: 3 MG, QD
     Route: 048
     Dates: start: 20160113
  3. SOLIRIS [Suspect]
     Active Substance: ECULIZUMAB
     Indication: MYASTHENIA GRAVIS
     Dosage: 900 MG, QW
     Route: 042
     Dates: start: 20190507, end: 20190528
  4. SOLIRIS [Suspect]
     Active Substance: ECULIZUMAB
     Dosage: 1200 MG, Q2W
     Route: 042
     Dates: start: 20190604
  5. LYRICA [Concomitant]
     Active Substance: PREGABALIN
     Indication: SPINAL LIGAMENT OSSIFICATION
     Dosage: 150 MG, BID
     Route: 048
     Dates: start: 20150209
  6. TALION                             /01587402/ [Concomitant]
     Active Substance: BEPOTASTINE BESYLATE
     Indication: RHINITIS ALLERGIC
     Dosage: 10 MG, BID
     Route: 048
     Dates: start: 20160106
  7. BONOTEO [Concomitant]
     Active Substance: MINODRONIC ACID
     Indication: PROPHYLAXIS
     Dosage: 50 MG, ONE TIME OF FOUR WEEKS
     Route: 048
     Dates: start: 20170516
  8. DAIPHEN [Concomitant]
     Active Substance: SULFAMETHOXAZOLE\TRIMETHOPRIM
     Indication: PROPHYLAXIS
     Dosage: 1 DF, QD
     Route: 048
     Dates: start: 20131113
  9. LANSOPRAZOLE. [Concomitant]
     Active Substance: LANSOPRAZOLE
     Indication: PROPHYLAXIS
     Dosage: 15 MG, QD
     Route: 048
     Dates: start: 20130518
  10. BEZATOL [Concomitant]
     Active Substance: BEZAFIBRATE
     Indication: LIPIDS ABNORMAL
     Dosage: 200 MG, BID
     Route: 048
     Dates: start: 20131015
  11. PREDONINE [Concomitant]
     Active Substance: PREDNISOLONE
     Indication: MYASTHENIA GRAVIS
     Dosage: 20 MG, QD
     Route: 048
     Dates: start: 20140708
  12. ALLOPURINOL. [Concomitant]
     Active Substance: ALLOPURINOL
     Indication: HYPERURICAEMIA
     Dosage: 100 MG, BID
     Route: 048
     Dates: start: 20151219
  13. MOHRUS [Concomitant]
     Active Substance: KETOPROFEN
     Indication: SPINAL LIGAMENT OSSIFICATION
     Dosage: APPROPRIATE AMOUNT, PRN
     Dates: start: 20170809
  14. PRIVINA                            /00419601/ [Concomitant]
     Indication: RHINITIS ALLERGIC
     Dosage: APPROPRIATE AMOUNT, PRN
     Route: 045
     Dates: start: 20160628

REACTIONS (2)
  - Contusion [Recovered/Resolved]
  - Cholangitis acute [Recovering/Resolving]

NARRATIVE: CASE EVENT DATE: 20190803
